FAERS Safety Report 5255006-X (Version None)
Quarter: 2007Q1

REPORT INFORMATION
  Report Type: 
  Country: None (occurrence: None)
  Receive Date: 20070305
  Receipt Date: 20070225
  Transmission Date: 20070707
  Serious: Yes (Hospitalization)
  Sender: FDA-Public Use
  Company Number: US-AMGEN-US212686

PATIENT
  Sex: Male

DRUGS (1)
  1. ENBREL [Suspect]
     Indication: RHEUMATOID ARTHRITIS
     Route: 058

REACTIONS (7)
  - ARTHROPOD BITE [None]
  - AXILLARY MASS [None]
  - HEADACHE [None]
  - LYMPHADENOPATHY [None]
  - NECK PAIN [None]
  - NECROTISING FASCIITIS [None]
  - TINNITUS [None]
